FAERS Safety Report 8914792 (Version 2)
Quarter: 2012Q4

REPORT INFORMATION
  Report Type: 
  Country: US (occurrence: US)
  Receive Date: 20121119
  Receipt Date: 20121129
  Transmission Date: 20130627
  Serious: Yes (Death, Other)
  Sender: FDA-Public Use
  Company Number: PHHY2012US104889

PATIENT
  Age: 19 Year
  Sex: Female

DRUGS (5)
  1. DOCETAXEL [Suspect]
     Indication: EWING^S SARCOMA
     Dosage: 100 mg/m2, UNK
  2. GEMCITABINE [Suspect]
     Indication: EWING^S SARCOMA
     Dosage: 900 mg/m2, UNK
  3. GEMCITABINE [Suspect]
     Dosage: 900 mg/m2, UNK
  4. BEVACIZUMAB [Suspect]
     Indication: EWING^S SARCOMA
     Dosage: 5 mg/kg, UNK
  5. BEVACIZUMAB [Suspect]
     Dosage: 5 mg/kg, UNK

REACTIONS (5)
  - Death [Fatal]
  - Bone marrow failure [Unknown]
  - Thrombocytopenia [Unknown]
  - Neutropenia [Unknown]
  - Malignant neoplasm progression [Unknown]
